FAERS Safety Report 8393316-8 (Version None)
Quarter: 2012Q2

REPORT INFORMATION
  Report Type: 
  Country: None (occurrence: None)
  Receive Date: 20120529
  Receipt Date: 20120518
  Transmission Date: 20120825
  Serious: Yes (Hospitalization)
  Sender: FDA-Public Use
  Company Number: US-JNJFOC-20120516908

PATIENT
  Sex: Male
  Weight: 62.6 kg

DRUGS (2)
  1. ADALIMUMAB [Concomitant]
     Indication: INFLAMMATORY BOWEL DISEASE
     Dates: start: 20091130, end: 20111110
  2. REMICADE [Suspect]
     Indication: INFLAMMATORY BOWEL DISEASE
     Route: 042
     Dates: start: 20080830, end: 20090814

REACTIONS (1)
  - INTESTINAL RESECTION [None]
